FAERS Safety Report 12413072 (Version 3)
Quarter: 2016Q3

REPORT INFORMATION
  Report Type: Report from Study
  Country: US (occurrence: US)
  Receive Date: 20160527
  Receipt Date: 20160929
  Transmission Date: 20161109
  Serious: Yes (Hospitalization, Other)
  Sender: FDA-Public Use
  Company Number: US-BAYER-2015-141559

PATIENT
  Age: 82 Year
  Sex: Female

DRUGS (9)
  1. NEXAVAR [Suspect]
     Active Substance: SORAFENIB
     Indication: SOFT TISSUE SARCOMA
     Dosage: 400 MG DAILY
     Route: 048
     Dates: start: 2015, end: 20150506
  2. NEXAVAR [Suspect]
     Active Substance: SORAFENIB
     Indication: SOFT TISSUE SARCOMA
     Dosage: 200 MG, QD, EXCEPT ON WEDNESDAY AND SUNDAY
     Route: 048
     Dates: start: 2015
  3. SIMVASTATINE [Concomitant]
     Active Substance: SIMVASTATIN
     Indication: BLOOD CHOLESTEROL INCREASED
  4. NEXAVAR [Suspect]
     Active Substance: SORAFENIB
     Indication: SOFT TISSUE SARCOMA
     Dosage: 200 MG, BID
     Route: 048
     Dates: start: 20150629
  5. METOPROLOL. [Concomitant]
     Active Substance: METOPROLOL
     Indication: BLOOD PRESSURE INCREASED
  6. HYDROCHLOROTHIAZIDE. [Concomitant]
     Active Substance: HYDROCHLOROTHIAZIDE
     Indication: BLOOD PRESSURE INCREASED
  7. NEXAVAR [Suspect]
     Active Substance: SORAFENIB
     Indication: SOFT TISSUE SARCOMA
     Dosage: 400 MG, QD
     Route: 048
  8. NEXAVAR [Suspect]
     Active Substance: SORAFENIB
     Indication: SOFT TISSUE SARCOMA
     Dosage: 200 MG, QD
     Route: 048
     Dates: start: 201503, end: 2015
  9. GLIMEPIRIDE. [Concomitant]
     Active Substance: GLIMEPIRIDE
     Indication: BLOOD GLUCOSE INCREASED

REACTIONS (23)
  - Aphasia [None]
  - Fatigue [Not Recovered/Not Resolved]
  - Off label use [None]
  - Decreased appetite [None]
  - Osteopenia [None]
  - Cerebrovascular accident [None]
  - General physical health deterioration [None]
  - Pain in extremity [Not Recovered/Not Resolved]
  - Anal incontinence [None]
  - Blood pressure increased [Recovering/Resolving]
  - Gastrointestinal haemorrhage [None]
  - Hyperaesthesia [Not Recovered/Not Resolved]
  - Paraesthesia [None]
  - Urinary incontinence [None]
  - Cerebrovascular accident [None]
  - Extremity contracture [None]
  - Arthralgia [Not Recovered/Not Resolved]
  - Peripheral swelling [None]
  - Urinary tract infection [None]
  - Neuropathy peripheral [None]
  - Muscular weakness [None]
  - Depression [None]
  - Hypoaesthesia [None]

NARRATIVE: CASE EVENT DATE: 20150409
